FAERS Safety Report 26130791 (Version 1)
Quarter: 2025Q4

REPORT INFORMATION
  Report Type: Report from Study
  Country: US (occurrence: US)
  Receive Date: 20251208
  Receipt Date: 20251208
  Transmission Date: 20260118
  Serious: Yes (Hospitalization)
  Sender: GILEAD
  Company Number: US-GILEAD-2025-0739375

PATIENT
  Age: 28 Year
  Sex: Male

DRUGS (2)
  1. AZTREONAM LYSINE [Suspect]
     Active Substance: AZTREONAM LYSINE
     Indication: Chronic respiratory failure
     Dosage: 75 MG, TID FOR 28 DAYS ON AND 28 DAYS OFF
     Route: 055
     Dates: start: 202308
  2. AZTREONAM LYSINE [Suspect]
     Active Substance: AZTREONAM LYSINE
     Indication: Hypoxia

REACTIONS (3)
  - Illness [Unknown]
  - Complication associated with device [Unknown]
  - Product use in unapproved indication [Not Recovered/Not Resolved]
